FAERS Safety Report 6662657-4 (Version None)
Quarter: 2010Q2

REPORT INFORMATION
  Report Type: 
  Country: None (occurrence: None)
  Receive Date: 20100401
  Receipt Date: 20100324
  Transmission Date: 20101027
  Serious: Yes (Hospitalization)
  Sender: FDA-Public Use
  Company Number: JP-BIOGENIDEC-2009BI037509

PATIENT
  Age: 54 Year
  Sex: Female

DRUGS (6)
  1. AVONEX [Suspect]
     Indication: RELAPSING-REMITTING MULTIPLE SCLEROSIS
     Route: 030
     Dates: start: 20090616, end: 20090601
  2. AVONEX [Suspect]
     Route: 030
     Dates: start: 20090601, end: 20091028
  3. MEVAN [Concomitant]
     Dates: end: 20091104
  4. METHYLPREDNISOLONE [Concomitant]
     Indication: MULTIPLE SCLEROSIS RELAPSE
     Dates: start: 20091007, end: 20091007
  5. SENNARIDE [Concomitant]
     Dates: start: 20081029
  6. NAIXAN [Concomitant]
     Dates: start: 20090616, end: 20091028

REACTIONS (1)
  - HEPATIC FUNCTION ABNORMAL [None]
